FAERS Safety Report 7935560-7 (Version None)
Quarter: 2011Q4

REPORT INFORMATION
  Report Type: 
  Country: None (occurrence: None)
  Receive Date: 20111123
  Receipt Date: 20111116
  Transmission Date: 20120403
  Serious: Yes (Other)
  Sender: FDA-Public Use
  Company Number: US-BIOGENIDEC-2011BI044554

PATIENT
  Sex: Female
  Weight: 58 kg

DRUGS (7)
  1. AVONEX [Suspect]
     Indication: MULTIPLE SCLEROSIS
     Route: 030
  2. LOSARTAN POTASSIUM [Concomitant]
  3. NAPROXEN (ALEVE) [Concomitant]
     Indication: PREMEDICATION
  4. CLARITIN [Concomitant]
  5. EXEMESTATEN (NOS) [Concomitant]
  6. FLEXERIL [Concomitant]
     Route: 048
  7. SOMA [Concomitant]

REACTIONS (1)
  - BREAST CANCER [None]
